FAERS Safety Report 9733004 (Version 1)
Quarter: 2013Q4

REPORT INFORMATION
  Report Type: Spontaneous
  Country: FR (occurrence: FR)
  Receive Date: 20131205
  Receipt Date: 20131205
  Transmission Date: 20140711
  Serious: Yes (Hospitalization)
  Sender: FDA-Public Use
  Company Number: FR-PFIZER INC-2013344267

PATIENT
  Age: 34 Year
  Sex: Male

DRUGS (10)
  1. EFFEXOR [Suspect]
     Dosage: 1 DF, 3X/DAY
     Route: 048
     Dates: start: 2010, end: 20131107
  2. ALPRAZOLAM [Suspect]
     Dosage: 1 DF, 3X/DAY
     Route: 048
     Dates: start: 2010, end: 20131107
  3. ANAFRANIL [Suspect]
     Dosage: 1 DF, 3X/DAY
     Route: 048
     Dates: start: 2010, end: 20131107
  4. THERALENE [Suspect]
     Dosage: 50 GTT, 1X/DAY
     Route: 048
     Dates: start: 2010, end: 20131107
  5. STILNOX [Suspect]
     Dosage: 10 MG, 1X/DAY
     Route: 048
     Dates: start: 2010, end: 20131107
  6. INEXIUM [Concomitant]
     Dosage: UNK
  7. LANTUS [Concomitant]
     Dosage: UNK
  8. NOVORAPID [Concomitant]
     Dosage: UNK
  9. TRIATEC [Concomitant]
     Dosage: UNK
  10. CREON [Concomitant]
     Dosage: UNK

REACTIONS (7)
  - Tremor [Recovering/Resolving]
  - Hypertonia [Recovering/Resolving]
  - Malaise [Unknown]
  - Muscular weakness [Unknown]
  - Asterixis [Unknown]
  - Weight decreased [Unknown]
  - Intentional drug misuse [Unknown]
